FAERS Safety Report 15044403 (Version 1)
Quarter: 2018Q2

REPORT INFORMATION
  Report Type: Spontaneous
  Country: US (occurrence: US)
  Receive Date: 20180621
  Receipt Date: 20180621
  Transmission Date: 20180711
  Serious: Yes (Other)
  Sender: FDA-Public Use
  Company Number: US-TEVA-2018-US-910841

PATIENT
  Age: 82 Year
  Sex: Female

DRUGS (2)
  1. AMOXICILLIN. [Suspect]
     Active Substance: AMOXICILLIN
     Indication: TOOTHACHE
     Dosage: 1750 MILLIGRAM DAILY; FOR 7 DAYS
     Route: 048
     Dates: start: 20180420, end: 20180423
  2. DOXYCYCLINE HYDROCHLORIDE [Suspect]
     Active Substance: DOXYCYCLINE HYDROCHLORIDE
     Indication: TOOTHACHE
     Dosage: 200 MILLIGRAM DAILY;
     Route: 048

REACTIONS (5)
  - Blood pressure increased [Recovered/Resolved]
  - Lip swelling [Unknown]
  - Swelling face [Unknown]
  - Asthenia [Recovered/Resolved]
  - Loss of consciousness [Recovered/Resolved]

NARRATIVE: CASE EVENT DATE: 20180423
